FAERS Safety Report 13554853 (Version 2)
Quarter: 2017Q3

REPORT INFORMATION
  Report Type: Report from Study
  Country: None (occurrence: US)
  Receive Date: 20170517
  Receipt Date: 20170823
  Transmission Date: 20171127
  Serious: Yes (Other)
  Sender: FDA-Public Use
  Company Number: US-ABBVIE-17K-163-1976318-00

PATIENT
  Age: 62 Year
  Sex: Male
  Weight: 58.57 kg

DRUGS (2)
  1. HUMIRA [Suspect]
     Active Substance: ADALIMUMAB
     Indication: RHEUMATOID ARTHRITIS
     Route: 058
     Dates: start: 2016, end: 201705
  2. HUMIRA [Suspect]
     Active Substance: ADALIMUMAB
     Route: 058
     Dates: start: 201705

REACTIONS (4)
  - Inguinal hernia [Recovering/Resolving]
  - Hiatus hernia [Unknown]
  - Groin pain [Unknown]
  - Procedural pain [Unknown]

NARRATIVE: CASE EVENT DATE: 201705
